FAERS Safety Report 10786185 (Version 1)
Quarter: 2015Q1

REPORT INFORMATION
  Report Type: Report from Study
  Country: US (occurrence: US)
  Receive Date: 20150211
  Receipt Date: 20150211
  Transmission Date: 20150721
  Serious: Yes (Other)
  Sender: FDA-Public Use
  Company Number: US-ABBVIE-15P-163-1342375-00

PATIENT
  Age: 26 Year
  Sex: Female
  Weight: 53.57 kg

DRUGS (3)
  1. NORCO [Concomitant]
     Active Substance: ACETAMINOPHEN\HYDROCODONE BITARTRATE
     Indication: PAIN
  2. LUPRON DEPOT [Suspect]
     Active Substance: LEUPROLIDE ACETATE
     Indication: ENDOMETRIOSIS
     Route: 030
     Dates: start: 20141120
  3. IBUPROFEN. [Concomitant]
     Active Substance: IBUPROFEN
     Indication: PAIN

REACTIONS (13)
  - Neuralgia [Recovered/Resolved]
  - Nerve compression [Recovered/Resolved]
  - Presyncope [Recovered/Resolved]
  - Soft tissue mass [Recovered/Resolved]
  - Weight decreased [Not Recovered/Not Resolved]
  - Dizziness [Recovered/Resolved]
  - Nerve stimulation test abnormal [Unknown]
  - Peroneal nerve palsy [Recovered/Resolved]
  - Neuropathy peripheral [Recovered/Resolved]
  - Hot flush [Not Recovered/Not Resolved]
  - Radiculopathy [Recovered/Resolved]
  - Decreased appetite [Not Recovered/Not Resolved]
  - Neuroma [Recovered/Resolved]

NARRATIVE: CASE EVENT DATE: 201411
